FAERS Safety Report 15863925 (Version 1)
Quarter: 2019Q1

REPORT INFORMATION
  Report Type: Spontaneous
  Country: US (occurrence: US)
  Receive Date: 20190124
  Receipt Date: 20190124
  Transmission Date: 20190417
  Serious: Yes (Other)
  Sender: FDA-Public Use
  Company Number: US-NAPPMUNDI-USA-2019-0145738

PATIENT
  Age: 59 Year
  Sex: Male

DRUGS (3)
  1. MORPHINE SULFATE (SIMILAR TO NDA 19-516) [Suspect]
     Active Substance: MORPHINE SULFATE
     Indication: PAIN IN EXTREMITY
     Route: 048
  2. HYDROCODONE BITARTRATE (SIMILAR TO NDA 206627) [Suspect]
     Active Substance: HYDROCODONE BITARTRATE
     Indication: PAIN IN EXTREMITY
     Dosage: UNK
     Route: 048
  3. HYDROCODONE BITARTRATE (SIMILAR TO NDA 206627) [Suspect]
     Active Substance: HYDROCODONE BITARTRATE
     Dosage: (2-3) DF, Q2H
     Route: 048

REACTIONS (17)
  - Dysphagia [Recovered/Resolved]
  - Tremor [Recovered/Resolved]
  - Feeling of body temperature change [Recovered/Resolved]
  - Anxiety [Recovered/Resolved]
  - Drug dependence [Recovered/Resolved]
  - Drug tolerance increased [Recovered/Resolved]
  - Drug abuse [Recovered/Resolved]
  - Pain in extremity [Recovered/Resolved]
  - Dizziness [Recovered/Resolved]
  - Gait inability [Recovered/Resolved]
  - Asthenia [Recovered/Resolved]
  - Drug withdrawal syndrome [Recovered/Resolved]
  - Pallor [Recovered/Resolved]
  - Euphoric mood [Recovered/Resolved]
  - Anger [Recovered/Resolved]
  - Drug effect decreased [Recovered/Resolved]
  - Mood altered [Recovered/Resolved]
